FAERS Safety Report 20126502 (Version 1)
Quarter: 2021Q4

REPORT INFORMATION
  Report Type: Spontaneous
  Country: US (occurrence: None)
  Receive Date: 20211129
  Receipt Date: 20211129
  Transmission Date: 20220304
  Serious: No
  Sender: FDA-Public Use
  Company Number: None

PATIENT
  Sex: Male

DRUGS (1)
  1. SILDENAFIL FOR ORAL SUSPENSION [Suspect]
     Active Substance: SILDENAFIL CITRATE
     Dosage: OTHER FREQUENCY : EVERY8HOURS;?VIA G TUBE
     Dates: start: 20210413

REACTIONS (5)
  - Bronchopulmonary dysplasia [None]
  - Pulmonary hypertension [None]
  - Paternal drugs affecting foetus [None]
  - Chronic respiratory disease [None]
  - Exposure via body fluid [None]
